FAERS Safety Report 23265885 (Version 2)
Quarter: 2024Q3

REPORT INFORMATION
  Report Type: Report from Study
  Country: CH (occurrence: CH)
  Receive Date: 20231206
  Receipt Date: 20240802
  Transmission Date: 20241017
  Serious: Yes (Hospitalization, Disabling, Other)
  Sender: ABBVIE
  Company Number: CH-ABBVIE-5524605

PATIENT
  Sex: Female

DRUGS (3)
  1. CARBIDOPA\LEVODOPA [Suspect]
     Active Substance: CARBIDOPA\LEVODOPA
     Indication: Parkinson^s disease
     Dosage: MD: 6.0 ML, CRD: 3.0 ML/H, ED: 2.0 ML
     Route: 050
     Dates: start: 20231129
  2. CARBIDOPA\LEVODOPA [Suspect]
     Active Substance: CARBIDOPA\LEVODOPA
     Route: 050
     Dates: start: 20161003
  3. SILVER NITRATE [Concomitant]
     Active Substance: SILVER NITRATE
     Indication: Product used for unknown indication

REACTIONS (19)
  - Cerebrovascular accident [Unknown]
  - Cognitive disorder [Not Recovered/Not Resolved]
  - Bedridden [Not Recovered/Not Resolved]
  - Apallic syndrome [Not Recovered/Not Resolved]
  - Stoma site hypergranulation [Not Recovered/Not Resolved]
  - Musculoskeletal stiffness [Not Recovered/Not Resolved]
  - Device issue [Recovered/Resolved]
  - Enteral nutrition [Not Recovered/Not Resolved]
  - Unresponsive to stimuli [Not Recovered/Not Resolved]
  - Off label use [Not Recovered/Not Resolved]
  - Hypotonia [Not Recovered/Not Resolved]
  - Device issue [Not Recovered/Not Resolved]
  - Somnolence [Not Recovered/Not Resolved]
  - Aphasia [Not Recovered/Not Resolved]
  - Device physical property issue [Recovered/Resolved]
  - Sitting disability [Not Recovered/Not Resolved]
  - Muscle contracture [Not Recovered/Not Resolved]
  - Hallucination [Not Recovered/Not Resolved]
  - Agitation [Not Recovered/Not Resolved]

NARRATIVE: CASE EVENT DATE: 20170101
